FAERS Safety Report 21747253 (Version 7)
Quarter: 2023Q1

REPORT INFORMATION
  Report Type: Report from Study
  Country: US (occurrence: US)
  Receive Date: 20221219
  Receipt Date: 20230310
  Transmission Date: 20230418
  Serious: Yes (Other)
  Sender: FDA-Public Use
  Company Number: US-BEH-2022152030

PATIENT
  Age: 52 Year
  Sex: Female
  Weight: 133.79 kg

DRUGS (15)
  1. HIZENTRA [Suspect]
     Active Substance: HUMAN IMMUNOGLOBULIN G
     Indication: Primary immunodeficiency syndrome
     Dosage: 13 GRAM, QW
     Route: 058
     Dates: start: 20221023
  2. HIZENTRA [Suspect]
     Active Substance: HUMAN IMMUNOGLOBULIN G
     Indication: Chronic inflammatory demyelinating polyradiculoneuropathy
     Dosage: UNK
     Route: 065
     Dates: start: 20221204
  3. HIZENTRA [Suspect]
     Active Substance: HUMAN IMMUNOGLOBULIN G
     Indication: Hypogammaglobulinaemia
     Dosage: 12 GRAM, QW
     Route: 058
     Dates: start: 202211
  4. HIZENTRA [Suspect]
     Active Substance: HUMAN IMMUNOGLOBULIN G
     Indication: Asthma
     Dosage: 1 GRAM, QW
     Route: 058
     Dates: start: 202211
  5. HIZENTRA [Suspect]
     Active Substance: HUMAN IMMUNOGLOBULIN G
     Indication: Asthma
     Dosage: UNK
     Route: 065
     Dates: start: 20230104, end: 20230104
  6. HIZENTRA [Suspect]
     Active Substance: HUMAN IMMUNOGLOBULIN G
     Indication: Idiopathic urticaria
     Dosage: 1 GRAM, QW
     Route: 058
     Dates: start: 202201
  7. HIZENTRA [Suspect]
     Active Substance: HUMAN IMMUNOGLOBULIN G
     Dosage: 12 GRAM, QW
     Route: 058
     Dates: start: 202201
  8. HIZENTRA [Suspect]
     Active Substance: HUMAN IMMUNOGLOBULIN G
     Dosage: UNK
     Route: 065
     Dates: start: 2023
  9. HIZENTRA [Suspect]
     Active Substance: HUMAN IMMUNOGLOBULIN G
     Dosage: 1 GRAM, QW
     Route: 058
     Dates: start: 202210
  10. HIZENTRA [Suspect]
     Active Substance: HUMAN IMMUNOGLOBULIN G
     Dosage: 12 GRAM, QW
     Route: 058
     Dates: start: 202210
  11. NYSTATIN [Concomitant]
     Active Substance: NYSTATIN
     Indication: Candida infection
     Dosage: UNK
     Dates: start: 202210
  12. PREDNISONE [Concomitant]
     Active Substance: PREDNISONE
     Indication: Asthma
     Dosage: UNK
  13. PREDNISONE [Concomitant]
     Active Substance: PREDNISONE
     Indication: Product used for unknown indication
     Dosage: TAPERING DOSE
     Dates: start: 202210, end: 202211
  14. TEZSPIRE [Concomitant]
     Active Substance: TEZEPELUMAB-EKKO
  15. XARELTO [Concomitant]
     Active Substance: RIVAROXABAN

REACTIONS (38)
  - Headache [Recovered/Resolved]
  - Oropharyngeal pain [Not Recovered/Not Resolved]
  - Nausea [Not Recovered/Not Resolved]
  - Constipation [Not Recovered/Not Resolved]
  - Peripheral swelling [Unknown]
  - Erythema [Unknown]
  - Cellulitis [Unknown]
  - Infusion site pain [Unknown]
  - Energy increased [Unknown]
  - No adverse event [Unknown]
  - Off label use [Unknown]
  - Headache [Recovered/Resolved]
  - Thrombosis [Unknown]
  - Swelling [Unknown]
  - Feeling abnormal [Not Recovered/Not Resolved]
  - Decreased appetite [Unknown]
  - Peripheral swelling [Unknown]
  - Peripheral swelling [Unknown]
  - Joint swelling [Unknown]
  - Oedema [Unknown]
  - Headache [Unknown]
  - Headache [Recovered/Resolved]
  - Upper respiratory tract infection [Unknown]
  - Ill-defined disorder [Unknown]
  - Insomnia [Unknown]
  - Oropharyngeal pain [Unknown]
  - Nasal congestion [Unknown]
  - Wheezing [Unknown]
  - Infusion site discomfort [Unknown]
  - Infusion site pain [Not Recovered/Not Resolved]
  - Peripheral swelling [Unknown]
  - Joint swelling [Unknown]
  - Arthritis [Unknown]
  - Arthralgia [Unknown]
  - Dyspnoea [Unknown]
  - Asthma [Unknown]
  - Weight increased [Unknown]
  - Upper respiratory tract infection [Not Recovered/Not Resolved]

NARRATIVE: CASE EVENT DATE: 20220101
